FAERS Safety Report 11773765 (Version 2)
Quarter: 2015Q4

REPORT INFORMATION
  Report Type: Spontaneous
  Country: FR (occurrence: FR)
  Receive Date: 20151124
  Receipt Date: 20151124
  Transmission Date: 20160304
  Serious: Yes (Life-Threatening)
  Sender: FDA-Public Use
  Company Number: FR-SA-2015SA190189

PATIENT
  Age: 72 Year
  Sex: Male

DRUGS (8)
  1. RAMIPRIL. [Suspect]
     Active Substance: RAMIPRIL
     Route: 048
     Dates: end: 20151013
  2. BISOPROLOL [Concomitant]
     Active Substance: BISOPROLOL
  3. DAFALGAN [Concomitant]
     Active Substance: ACETAMINOPHEN
  4. TEMESTA [Concomitant]
     Active Substance: LORAZEPAM
  5. SIMVASTATIN. [Concomitant]
     Active Substance: SIMVASTATIN
  6. LASILIX [Suspect]
     Active Substance: FUROSEMIDE
     Indication: PROPHYLAXIS
     Route: 048
     Dates: end: 20151014
  7. DOBUTAMINE [Suspect]
     Active Substance: DOBUTAMINE\DOBUTAMINE HYDROCHLORIDE
     Indication: PROPHYLAXIS
     Dosage: ROUTE: PRT
     Dates: start: 20151013, end: 20151014
  8. PREVISCAN [Concomitant]
     Active Substance: FLUINDIONE

REACTIONS (1)
  - Angioedema [Recovered/Resolved]

NARRATIVE: CASE EVENT DATE: 20151014
